FAERS Safety Report 6955876-0 (Version None)
Quarter: 2010Q3

REPORT INFORMATION
  Report Type: 
  Country: None (occurrence: None)
  Receive Date: 20100830
  Receipt Date: 20100820
  Transmission Date: 20110219
  Serious: Yes (Hospitalization)
  Sender: FDA-Public Use
  Company Number: JP-ROCHE-723367

PATIENT
  Sex: Female

DRUGS (3)
  1. AVASTIN [Suspect]
     Indication: LUNG ADENOCARCINOMA
     Route: 041
     Dates: start: 20100809
  2. CARBOPLATIN [Suspect]
     Dosage: DOSAGE IS UNCERTAIN
     Route: 042
  3. PACLITAXEL [Suspect]
     Dosage: DOSAGE IS UNCERTAIN
     Route: 041

REACTIONS (1)
  - SKIN DISORDER [None]
